FAERS Safety Report 8305360-7 (Version None)
Quarter: 2012Q2

REPORT INFORMATION
  Report Type: 
  Country: None (occurrence: None)
  Receive Date: 20120423
  Receipt Date: 20120413
  Transmission Date: 20120825
  Serious: Yes (Other)
  Sender: FDA-Public Use
  Company Number: JP-JNJFOC-20120211943

PATIENT
  Age: 53 Year
  Sex: Female

DRUGS (7)
  1. SULFAMETHOXAZOLE AND TRIMETHOPRIM [Suspect]
     Indication: INFECTION PROPHYLAXIS
     Route: 065
     Dates: start: 20101101
  2. DEXAMETHASONE [Concomitant]
     Indication: MULTIPLE MYELOMA
     Route: 065
     Dates: start: 20101001
  3. LENALIDOMIDE [Interacting]
     Route: 048
     Dates: start: 20101106
  4. LENALIDOMIDE [Interacting]
     Indication: MULTIPLE MYELOMA
     Route: 048
  5. LENALIDOMIDE [Interacting]
     Route: 048
  6. ITRACONAZOLE [Suspect]
     Indication: ANTIFUNGAL PROPHYLAXIS
     Route: 048
     Dates: start: 20101215, end: 20101230
  7. LENALIDOMIDE [Interacting]
     Route: 048
     Dates: start: 20101101

REACTIONS (4)
  - DRUG LEVEL INCREASED [None]
  - DRUG INEFFECTIVE [None]
  - FEBRILE NEUTROPENIA [None]
  - DRUG INTERACTION [None]
